FAERS Safety Report 22016302 (Version 2)
Quarter: 2023Q1

REPORT INFORMATION
  Report Type: Report from Study
  Country: RO (occurrence: RO)
  Receive Date: 20230221
  Receipt Date: 20230308
  Transmission Date: 20230417
  Serious: Yes (Hospitalization, Other)
  Sender: FDA-Public Use
  Company Number: RO-002147023-NVSC2023RO030650

PATIENT

DRUGS (2)
  1. RUXOLITINIB [Suspect]
     Active Substance: RUXOLITINIB
     Indication: Splenomegaly
     Dosage: 5 MG (STARTED: 7 YEARS AGO) (SHE TOOK IT FOR 5 YEARS)
     Route: 048
  2. RUXOLITINIB [Suspect]
     Active Substance: RUXOLITINIB
     Dosage: 15 MG, BID (STARTED: SINCE 2 YEARS AGO) (1 IN THE MORNING AND 1 IN THE EVENING)
     Route: 048

REACTIONS (16)
  - Cardiac valve disease [Unknown]
  - Chronic kidney disease [Unknown]
  - COVID-19 [Recovered/Resolved with Sequelae]
  - Blood creatinine increased [Unknown]
  - Decreased immune responsiveness [Unknown]
  - Serum ferritin increased [Unknown]
  - Cardiac disorder [Unknown]
  - Haemoglobin decreased [Recovering/Resolving]
  - Insomnia [Unknown]
  - Palpitations [Unknown]
  - Splenomegaly [Not Recovered/Not Resolved]
  - Abdominal pain [Unknown]
  - Hypertension [Unknown]
  - Heart rate increased [Unknown]
  - Product use in unapproved indication [Unknown]
  - Red blood cell abnormality [Unknown]

NARRATIVE: CASE EVENT DATE: 20220701
